FAERS Safety Report 15769322 (Version 6)
Quarter: 2019Q3

REPORT INFORMATION
  Report Type: Report from Study
  Country: CN (occurrence: CN)
  Receive Date: 20181228
  Receipt Date: 20190910
  Transmission Date: 20191004
  Serious: Yes (Hospitalization)
  Sender: FDA-Public Use
  Company Number: CN-ROCHE-2232038

PATIENT
  Age: 48 Year
  Sex: Female
  Weight: 55.5 kg

DRUGS (8)
  1. ALFACALCIDOL [Concomitant]
     Active Substance: ALFACALCIDOL
     Route: 065
     Dates: start: 20160712
  2. FOLIC ACID. [Concomitant]
     Active Substance: FOLIC ACID
     Route: 065
     Dates: start: 20160927
  3. TOCILIZUMAB. [Suspect]
     Active Substance: TOCILIZUMAB
     Indication: RHEUMATOID ARTHRITIS
     Dosage: FORM STRENGTH: 180 MG/ML?DATE OF MOST RECENT DOSE OF OPEN LABEL TOCILIZUMAB PRIOR TO THE DATE ON WHI
     Route: 058
     Dates: start: 20180704
  4. METACORTANDRACIN [Concomitant]
     Indication: RHEUMATOID ARTHRITIS
     Route: 048
     Dates: start: 20150706
  5. METHOTREXATE (METHOTREXATE SODIUM) [Suspect]
     Active Substance: METHOTREXATE SODIUM
     Indication: RHEUMATOID ARTHRITIS
     Dosage: DATE OF MOST RECENT DOSE OF BLINDED METHOTREXATE PRIOR TO THE ONSET OF PROLONGED MENSTRUAL BLEEDING:
     Route: 048
     Dates: start: 20180318
  6. METHOTREXATE. [Suspect]
     Active Substance: METHOTREXATE
     Indication: RHEUMATOID ARTHRITIS
     Dosage: 10 TO 25 MG?DATE OF MOST RECENT DOSE OF OEN LABEL METHOTREXATE PRIOR TO THE DATE ON WHICH THE PROLON
     Route: 048
     Dates: start: 20180708
  7. OYSTER SHELL CALCIUM [Concomitant]
     Active Substance: CALCIUM
     Route: 065
     Dates: start: 20160712
  8. BLINDED TOCILIZUMAB [Suspect]
     Active Substance: TOCILIZUMAB
     Indication: RHEUMATOID ARTHRITIS
     Dosage: DATE OF MOST RECENT DOSE OF BLINDED TOCILIZUMAB PRIOR TO THE ONSET OF PROLONGED MENSTRUAL BLEEDING:
     Route: 058
     Dates: start: 20180312

REACTIONS (1)
  - Menorrhagia [Recovered/Resolved]

NARRATIVE: CASE EVENT DATE: 20181020
